FAERS Safety Report 7477780-4 (Version None)
Quarter: 2011Q2

REPORT INFORMATION
  Report Type: 
  Country: None (occurrence: None)
  Receive Date: 20110513
  Receipt Date: 20110407
  Transmission Date: 20111010
  Serious: No
  Sender: FDA-Public Use
  Company Number: A0922935A

PATIENT
  Age: 49 Year
  Sex: Female

DRUGS (1)
  1. TREXIMET [Suspect]
     Route: 065

REACTIONS (1)
  - GASTRIC DISORDER [None]
